FAERS Safety Report 24220750 (Version 1)
Quarter: 2024Q3

REPORT INFORMATION
  Report Type: Spontaneous
  Country: DK (occurrence: DK)
  Receive Date: 20240818
  Receipt Date: 20240818
  Transmission Date: 20241017
  Serious: Yes (Other)
  Sender: JOHNSON AND JOHNSON
  Company Number: None

PATIENT
  Age: 56 Year
  Sex: Male
  Weight: 83 kg

DRUGS (3)
  1. STELARA [Suspect]
     Active Substance: USTEKINUMAB
     Indication: Crohn^s disease
     Dosage: DOSAGE: 90 MG ADMINISTERED AT UNKNOWN INTERVAL
     Route: 058
     Dates: start: 202312, end: 202406
  2. OMEPRAZOLE [Concomitant]
     Active Substance: OMEPRAZOLE
     Indication: Dyspepsia
     Dosage: STRENGTH: 20 MG
     Dates: start: 20230920
  3. COLESEVELAM HYDROCHLORIDE [Concomitant]
     Active Substance: COLESEVELAM HYDROCHLORIDE
     Indication: Bile acid malabsorption
     Dosage: DOSAGE: 1250 MG 2-3 TIMES DAILY
     Dates: start: 202301

REACTIONS (7)
  - Pain in extremity [Recovering/Resolving]
  - Polyneuropathy [Recovering/Resolving]
  - Urethral haemorrhage [Recovered/Resolved]
  - Hypoaesthesia [Recovering/Resolving]
  - Prostatitis [Recovered/Resolved]
  - Perineal pain [Recovering/Resolving]
  - Sensory disturbance [Recovering/Resolving]

NARRATIVE: CASE EVENT DATE: 20240101
